FAERS Safety Report 20207845 (Version 3)
Quarter: 2022Q1

REPORT INFORMATION
  Report Type: Spontaneous
  Country: US (occurrence: US)
  Receive Date: 20211220
  Receipt Date: 20220209
  Transmission Date: 20220423
  Serious: Yes (Other)
  Sender: FDA-Public Use
  Company Number: US-PFIZER INC-202101797683

PATIENT
  Age: 67 Year
  Sex: Female

DRUGS (19)
  1. PROTONIX [Suspect]
     Active Substance: PANTOPRAZOLE SODIUM
     Indication: Gastrooesophageal reflux disease
     Dosage: 20 MG
  2. NEXIUM [Suspect]
     Active Substance: ESOMEPRAZOLE MAGNESIUM
     Indication: Gastrooesophageal reflux disease
     Dosage: 40 MG, DAILY
     Dates: start: 1994, end: 2015
  3. NEXIUM [Suspect]
     Active Substance: ESOMEPRAZOLE MAGNESIUM
     Dosage: 40 MG
     Dates: start: 2012, end: 2016
  4. PRILOSEC [Suspect]
     Active Substance: OMEPRAZOLE MAGNESIUM
     Indication: Gastrooesophageal reflux disease
     Dosage: UNK
     Dates: start: 1993, end: 2015
  5. PREVACID [Suspect]
     Active Substance: LANSOPRAZOLE
     Indication: Ulcer
     Dosage: UNK
  6. PANTOPRAZOLE [Suspect]
     Active Substance: PANTOPRAZOLE
     Indication: Gastrooesophageal reflux disease
     Dosage: 20 MG, DAILY
     Dates: end: 2019
  7. ACIPHEX [Suspect]
     Active Substance: RABEPRAZOLE SODIUM
     Dosage: UNK
  8. AMOXICILLIN [Concomitant]
     Active Substance: AMOXICILLIN
     Indication: Antibiotic therapy
     Dosage: UNK
     Dates: start: 2013, end: 2015
  9. AZITHROMYCIN [Concomitant]
     Active Substance: AZITHROMYCIN
     Indication: Antibiotic therapy
     Dosage: UNK
     Dates: start: 2013, end: 2015
  10. CIPROFLOXACIN [Concomitant]
     Active Substance: CIPROFLOXACIN
     Indication: Antibiotic therapy
     Dosage: UNK
     Dates: start: 2012
  11. DOXYCYCLINE [Concomitant]
     Active Substance: DOXYCYCLINE
     Indication: Antibiotic therapy
     Dosage: UNK
     Dates: start: 2014, end: 2015
  12. SULFAMETHOXAZOLE\TRIMETHOPRIM [Concomitant]
     Active Substance: SULFAMETHOXAZOLE\TRIMETHOPRIM
     Indication: Antibiotic therapy
     Dosage: UNK
     Dates: start: 2012
  13. TRIAMTERENE AND HYDROCHLOROTHIAZIDE [Concomitant]
     Active Substance: HYDROCHLOROTHIAZIDE\TRIAMTERENE
     Indication: Hypertension
     Dosage: UNK
     Dates: start: 2012, end: 2015
  14. IBUPROFEN [Concomitant]
     Active Substance: IBUPROFEN
     Indication: Pain
     Dosage: INTERMITTENTLY AS NEEDED THROUGHOUT THE YEARS
  15. IBUPROFEN [Concomitant]
     Active Substance: IBUPROFEN
     Indication: Headache
  16. ACETAMINOPHEN [Concomitant]
     Active Substance: ACETAMINOPHEN
     Indication: Pain
     Dosage: INTERMITTENTLY AS NEEDED THROUGHOUT THE YEARS
  17. ACETAMINOPHEN [Concomitant]
     Active Substance: ACETAMINOPHEN
     Indication: Headache
  18. NIACIN [Concomitant]
     Active Substance: NIACIN
     Indication: Vitamin supplementation
     Dosage: UNK
  19. VITAMIN D2 [Concomitant]
     Active Substance: ERGOCALCIFEROL
     Indication: Vitamin supplementation
     Dosage: UNK

REACTIONS (4)
  - Chronic kidney disease [Not Recovered/Not Resolved]
  - Acute kidney injury [Not Recovered/Not Resolved]
  - Renal failure [Unknown]
  - Blood creatinine increased [Not Recovered/Not Resolved]

NARRATIVE: CASE EVENT DATE: 20160101
